FAERS Safety Report 17841296 (Version 3)
Quarter: 2020Q3

REPORT INFORMATION
  Report Type: Report from Study
  Country: GB (occurrence: GB)
  Receive Date: 20200529
  Receipt Date: 20200710
  Transmission Date: 20201103
  Serious: Yes (Death, Hospitalization, Other)
  Sender: FDA-Public Use
  Company Number: GB-EMD SERONO-9144143

PATIENT
  Age: 49 Year
  Sex: Female

DRUGS (5)
  1. NUROFEN                            /00109201/ [Suspect]
     Active Substance: IBUPROFEN
     Indication: ARTHRALGIA
  2. NUROFEN                            /00109201/ [Suspect]
     Active Substance: IBUPROFEN
     Indication: BACK PAIN
  3. NUROFEN                            /00109201/ [Suspect]
     Active Substance: IBUPROFEN
     Indication: PAIN
  4. MAVENCLAD [Suspect]
     Active Substance: CLADRIBINE
     Indication: MULTIPLE SCLEROSIS
     Dosage: FIRST WEEK THERAPY: TWO TABLETS ON DAYS 1 TO 2 AND ONE TABLET ON DAYS 3 TO 5
     Route: 048
     Dates: start: 20191231, end: 20200103
  5. MAVENCLAD [Suspect]
     Active Substance: CLADRIBINE
     Dosage: SECOND WEEK THERAPY: TWO TABLETS ON DAYS 1 TO 2 AND ONE TABLET ON DAYS 3 TO 5
     Route: 048

REACTIONS (9)
  - Plasma cell leukaemia [Unknown]
  - Fall [Unknown]
  - Lower respiratory tract infection [Recovering/Resolving]
  - Somnolence [Unknown]
  - Head injury [Fatal]
  - Renal function test abnormal [Unknown]
  - Plasma cell myeloma [Unknown]
  - Insomnia [Unknown]
  - Asthenia [Unknown]

NARRATIVE: CASE EVENT DATE: 202001
